FAERS Safety Report 22518830 (Version 1)
Quarter: 2023Q2

REPORT INFORMATION
  Report Type: Spontaneous
  Country: CA (occurrence: CA)
  Receive Date: 20230605
  Receipt Date: 20230605
  Transmission Date: 20230722
  Serious: Yes (Other)
  Sender: FDA-Public Use
  Company Number: CA-CELLTRION INC.-2023CA011373

PATIENT

DRUGS (1)
  1. INFLECTRA [Suspect]
     Active Substance: INFLIXIMAB-DYYB
     Dosage: UNK
     Route: 042

REACTIONS (3)
  - Lymphadenopathy [Recovering/Resolving]
  - Sinus congestion [Unknown]
  - Lymph node pain [Not Recovered/Not Resolved]

NARRATIVE: CASE EVENT DATE: 20230501
